FAERS Safety Report 16101523 (Version 1)
Quarter: 2019Q1

REPORT INFORMATION
  Report Type: Spontaneous
  Country: JP (occurrence: JP)
  Receive Date: 20190321
  Receipt Date: 20190321
  Transmission Date: 20190418
  Serious: Yes (Death, Life-Threatening, Hospitalization, Disabling, Other)
  Sender: FDA-Public Use
  Company Number: JP-009507513-97100184

PATIENT
  Age: 75 Year
  Sex: Male
  Weight: 39.09 kg

DRUGS (10)
  1. TIENAM [Concomitant]
     Active Substance: CILASTATIN SODIUM\IMIPENEM
     Dosage: 1 G, DAILY (1/D)
     Route: 042
     Dates: start: 19970625, end: 19970825
  2. VASOTEC [Concomitant]
     Active Substance: ENALAPRIL MALEATE
     Indication: HYPERTENSION
     Dosage: 10 MG, QD
     Route: 048
     Dates: start: 1997, end: 19970910
  3. DRAGANON [Concomitant]
     Dosage: 600 MG, DAILY (1/D)
     Route: 048
     Dates: start: 1994, end: 19970910
  4. CRAVIT [Concomitant]
     Active Substance: LEVOFLOXACIN
     Dosage: 300 MG, DAILY (1/D)
     Dates: start: 19970625, end: 19970825
  5. RENIVACE [Concomitant]
     Active Substance: ENALAPRIL
     Indication: HYPERTENSION
     Dosage: 10 MG, DAILY (1/D)
     Route: 048
     Dates: start: 19970525, end: 19970910
  6. SYMMETREL [Concomitant]
     Active Substance: AMANTADINE HYDROCHLORIDE
     Dosage: 100 MG, DAILY (1/D)
     Route: 048
     Dates: start: 1994, end: 19970910
  7. VANCOCIN [Concomitant]
     Active Substance: VANCOMYCIN HYDROCHLORIDE
     Indication: INFECTION
     Dosage: 1000 MG, QD
     Route: 042
     Dates: start: 19970620, end: 19970825
  8. LEVOFLOXACIN. [Concomitant]
     Active Substance: LEVOFLOXACIN
     Indication: INFECTION
     Dosage: 100 MG, TID
     Route: 042
     Dates: start: 19970620, end: 19970825
  9. PRIMAXIN IV [Suspect]
     Active Substance: CILASTATIN SODIUM\IMIPENEM
     Indication: INFECTION
     Dosage: 1000 MG, QD
     Route: 042
     Dates: start: 19970620, end: 19970825
  10. VANCOCIN [Suspect]
     Active Substance: VANCOMYCIN HYDROCHLORIDE
     Indication: PNEUMONIA
     Dosage: 1 G, DAILY (1/D)
     Route: 042
     Dates: start: 19970625, end: 19970825

REACTIONS (3)
  - Toxic epidermal necrolysis [Fatal]
  - Bacterial sepsis [Fatal]
  - Disseminated intravascular coagulation [Fatal]

NARRATIVE: CASE EVENT DATE: 19970825
